FAERS Safety Report 17326743 (Version 1)
Quarter: 2020Q1

REPORT INFORMATION
  Report Type: Spontaneous
  Country: US (occurrence: US)
  Receive Date: 20200127
  Receipt Date: 20200127
  Transmission Date: 20200409
  Serious: No
  Sender: FDA-Public Use
  Company Number: US-ABBVIE-19K-163-2872871-00

PATIENT
  Sex: Male
  Weight: 98.52 kg

DRUGS (2)
  1. LUPRON [Suspect]
     Active Substance: LEUPROLIDE ACETATE
     Indication: PRODUCT USED FOR UNKNOWN INDICATION
     Route: 065
  2. XTANDI [Suspect]
     Active Substance: ENZALUTAMIDE
     Indication: PROSTATE CANCER METASTATIC
     Route: 065
     Dates: start: 201612

REACTIONS (5)
  - Blood testosterone decreased [Unknown]
  - Loss of libido [Unknown]
  - Bone disorder [Unknown]
  - Weight decreased [Unknown]
  - Prostatic specific antigen decreased [Unknown]
